FAERS Safety Report 13980990 (Version 1)
Quarter: 2017Q3

REPORT INFORMATION
  Report Type: Spontaneous
  Country: US (occurrence: None)
  Receive Date: 20170915
  Receipt Date: 20170915
  Transmission Date: 20171128
  Serious: No
  Sender: FDA-Public Use
  Company Number: None

PATIENT
  Age: 59 Year
  Sex: Male

DRUGS (5)
  1. CEFTRIAXONE. [Concomitant]
     Active Substance: CEFTRIAXONE
  2. CEFTRIAXONE. [Suspect]
     Active Substance: CEFTRIAXONE
     Indication: MENINGITIS
     Route: 042
     Dates: start: 20170730, end: 20170730
  3. ACYCLOVIR. [Concomitant]
     Active Substance: ACYCLOVIR
  4. METHYLPREDNISOLONE. [Concomitant]
     Active Substance: METHYLPREDNISOLONE
  5. VANCOMYCIN [Concomitant]
     Active Substance: VANCOMYCIN

REACTIONS (11)
  - Aggression [None]
  - Abnormal behaviour [None]
  - Stridor [None]
  - Delusion of grandeur [None]
  - Urticaria [None]
  - Sedation complication [None]
  - Agitation [None]
  - Tachyphrenia [None]
  - Impulsive behaviour [None]
  - Depressed level of consciousness [None]
  - Respiratory failure [None]

NARRATIVE: CASE EVENT DATE: 20170730
